FAERS Safety Report 8145930-2 (Version None)
Quarter: 2012Q1

REPORT INFORMATION
  Report Type: 
  Country: None (occurrence: None)
  Receive Date: 20120217
  Receipt Date: 20110629
  Transmission Date: 20120608
  Serious: No
  Sender: FDA-Public Use
  Company Number: US-ABBOTT-11P-163-0835143-00

PATIENT
  Sex: Female
  Weight: 79.904 kg

DRUGS (3)
  1. HYDROCHLOROT [Concomitant]
     Indication: PRODUCT USED FOR UNKNOWN INDICATION
  2. SIMCOR [Suspect]
     Indication: PRODUCT USED FOR UNKNOWN INDICATION
     Dosage: 500/20MG, AT BEDTIME
     Dates: start: 20091001
  3. ASPIRIN [Concomitant]
     Indication: PRODUCT USED FOR UNKNOWN INDICATION
     Dosage: 1 IN 1 AT BEDTIME

REACTIONS (3)
  - JOINT STIFFNESS [None]
  - HOT FLUSH [None]
  - ADVERSE DRUG REACTION [None]
